FAERS Safety Report 24826132 (Version 1)
Quarter: 2025Q1

REPORT INFORMATION
  Report Type: Spontaneous
  Country: KR (occurrence: KR)
  Receive Date: 20250109
  Receipt Date: 20250109
  Transmission Date: 20250409
  Serious: Yes (Other)
  Sender: ORGANON
  Company Number: KR-ORGANON-O2501KOR000572

PATIENT
  Age: 51 Year
  Sex: Female

DRUGS (2)
  1. ATORVASTATIN CALCIUM\EZETIMIBE [Suspect]
     Active Substance: ATORVASTATIN CALCIUM\EZETIMIBE
     Indication: Type IIa hyperlipidaemia
     Dosage: 1 DOSAGE FORM, QD, FILM COATED TABLETS
     Route: 048
     Dates: start: 20200501
  2. TELMISARTAN AND AMLODIPINE [Concomitant]
     Active Substance: AMLODIPINE BESYLATE\TELMISARTAN
     Indication: Essential hypertension
     Dosage: UNK, QD
     Route: 048
     Dates: start: 20180711

REACTIONS (1)
  - Gastric ulcer [Recovering/Resolving]

NARRATIVE: CASE EVENT DATE: 20200807
